FAERS Safety Report 7229547-X (Version None)
Quarter: 2011Q1

REPORT INFORMATION
  Report Type: 
  Country: None (occurrence: None)
  Receive Date: 20110117
  Receipt Date: 20100803
  Transmission Date: 20110831
  Serious: Yes (Other)
  Sender: FDA-Public Use
  Company Number: DE-TYCO HEALTHCARE/MALLINCKRODT-T201001004

PATIENT

DRUGS (4)
  1. SODIUM CHLORIDE [Suspect]
     Indication: ARTHROGRAM
     Dosage: 10 ML, SINGLE
     Route: 014
  2. MAGNEVIST [Suspect]
     Indication: ARTHROGRAM
     Dosage: 1 ML, SINGLE
     Route: 013
  3. OPTIRAY 350 [Suspect]
     Indication: ARTHROGRAM
     Route: 014
  4. LIDOCAINE HYDROCHLORIDE IN PLASTIC CONTAINER [Suspect]
     Indication: LOCAL ANAESTHESIA
     Dosage: 5 ML, SINGLE
     Route: 014

REACTIONS (6)
  - JOINT EFFUSION [None]
  - INCORRECT DOSE ADMINISTERED [None]
  - OFF LABEL USE [None]
  - WRONG TECHNIQUE IN DRUG USAGE PROCESS [None]
  - INCORRECT ROUTE OF DRUG ADMINISTRATION [None]
  - STAPHYLOCOCCUS TEST POSITIVE [None]
